FAERS Safety Report 5052189-1 (Version None)
Quarter: 2006Q3

REPORT INFORMATION
  Report Type: 
  Country: None (occurrence: None)
  Receive Date: 20060714
  Receipt Date: 20060714
  Transmission Date: 20061208
  Serious: No
  Sender: FDA-Public Use
  Company Number: None

PATIENT
  Sex: Male
  Weight: 9 kg

DRUGS (1)
  1. ZITHROMAX [Suspect]
     Indication: OTITIS MEDIA
     Dosage: ONCE DAILY   PO
     Route: 048
     Dates: start: 20060710, end: 20060713

REACTIONS (1)
  - RASH MACULO-PAPULAR [None]
